FAERS Safety Report 22637042 (Version 1)
Quarter: 2023Q2

REPORT INFORMATION
  Report Type: Spontaneous
  Country: US (occurrence: US)
  Receive Date: 20230626
  Receipt Date: 20230626
  Transmission Date: 20230722
  Serious: No
  Sender: FDA-Public Use
  Company Number: US-AMGEN-USASP2023108979

PATIENT
  Age: 61 Year
  Sex: Female

DRUGS (1)
  1. TAVNEOS [Suspect]
     Active Substance: AVACOPAN
     Indication: Microscopic polyangiitis
     Dosage: 30 MILLIGRAM, BID (30 MG TWICE DAILY)
     Route: 065
     Dates: start: 20230303

REACTIONS (2)
  - Abdominal pain upper [Unknown]
  - Product dose omission issue [Unknown]

NARRATIVE: CASE EVENT DATE: 20230101
